FAERS Safety Report 5118493-3 (Version None)
Quarter: 2006Q3

REPORT INFORMATION
  Report Type: 
  Country: None (occurrence: None)
  Receive Date: 20060926
  Receipt Date: 20060915
  Transmission Date: 20061208
  Serious: Yes (Hospitalization)
  Sender: FDA-Public Use
  Company Number: 200610697

PATIENT
  Age: 72 Year
  Sex: Female
  Weight: 66 kg

DRUGS (12)
  1. SANDOGLOBULIN [Suspect]
     Indication: SELECTIVE IGG SUBCLASS DEFICIENCY
     Dosage: SEE IMAGE
     Route: 042
     Dates: start: 20050913
  2. SANDOGLOBULIN [Suspect]
     Indication: SELECTIVE IGG SUBCLASS DEFICIENCY
     Dosage: SEE IMAGE
     Route: 042
     Dates: start: 20060901
  3. BERLTHYROX [Concomitant]
  4. PLASTUFER [Concomitant]
  5. CALCIUM 500 HEXAL [Concomitant]
  6. ACC /00082801/ [Concomitant]
  7. FURORESE [Concomitant]
  8. SYMBICORT [Concomitant]
  9. TROMCARDIN [Concomitant]
  10. VIGANTOL [Concomitant]
  11. PANTOZOL [Concomitant]
  12. AMITRIPTYLIN [Concomitant]

REACTIONS (9)
  - BLOOD PRESSURE DECREASED [None]
  - CARDIOVASCULAR DISORDER [None]
  - CYANOSIS [None]
  - DYSPNOEA [None]
  - FEELING HOT [None]
  - INFUSION RELATED REACTION [None]
  - NAUSEA [None]
  - TACHYCARDIA [None]
  - VOMITING [None]
